FAERS Safety Report 8481286-3 (Version None)
Quarter: 2012Q3

REPORT INFORMATION
  Report Type: 
  Country: None (occurrence: None)
  Receive Date: 20120702
  Receipt Date: 20120622
  Transmission Date: 20120928
  Serious: Yes (Hospitalization, Other)
  Sender: FDA-Public Use
  Company Number: FR-PFIZER INC-2012155000

PATIENT
  Age: 15 Year
  Sex: Male

DRUGS (4)
  1. CEFPODOXIME PROXETIL [Suspect]
     Indication: PRODUCT USED FOR UNKNOWN INDICATION
     Dosage: UNK
     Route: 048
     Dates: start: 20110522, end: 20110528
  2. AUGMENTIN '125' [Suspect]
     Indication: PRODUCT USED FOR UNKNOWN INDICATION
     Dosage: UNK
     Dates: start: 20110529, end: 20110604
  3. CORDARONE [Suspect]
     Indication: PRODUCT USED FOR UNKNOWN INDICATION
     Dosage: UNK ONE DAY ONLY
     Route: 065
     Dates: start: 20110529, end: 20110529
  4. DOBUTAMINE HYDROCHLORIDE [Suspect]
     Indication: PRODUCT USED FOR UNKNOWN INDICATION
     Dosage: UNK
     Route: 042
     Dates: start: 20110529, end: 20110531

REACTIONS (5)
  - ACUTE GENERALISED EXANTHEMATOUS PUSTULOSIS [None]
  - FUNGAL TEST POSITIVE [None]
  - LUNG DISORDER [None]
  - MYOCARDITIS [None]
  - STREPTOCOCCUS TEST POSITIVE [None]
